FAERS Safety Report 11679526 (Version 3)
Quarter: 2015Q4

REPORT INFORMATION
  Report Type: Spontaneous
  Country: US (occurrence: US)
  Receive Date: 20151027
  Receipt Date: 20151110
  Transmission Date: 20160304
  Serious: No
  Sender: FDA-Public Use
  Company Number: US-ELI_LILLY_AND_COMPANY-US201010006831

PATIENT
  Age: 71 Year
  Sex: Female
  Weight: 71.66 kg

DRUGS (1)
  1. FORTEO [Suspect]
     Active Substance: TERIPARATIDE
     Indication: OSTEOPOROSIS
     Dosage: 20 UG, QD
     Route: 058
     Dates: start: 201006

REACTIONS (6)
  - Ventricular extrasystoles [Unknown]
  - Musculoskeletal pain [Unknown]
  - Rash [Unknown]
  - Paraesthesia [Unknown]
  - Blood calcium increased [Unknown]
  - Pain in extremity [Unknown]
